FAERS Safety Report 6083250-0 (Version None)
Quarter: 2009Q1

REPORT INFORMATION
  Report Type: 
  Country: None (occurrence: None)
  Receive Date: 20090217
  Receipt Date: 20090204
  Transmission Date: 20090719
  Serious: Yes (Death)
  Sender: FDA-Public Use
  Company Number: 2009US000066

PATIENT
  Age: 58 Year
  Sex: Male

DRUGS (11)
  1. PROGRAF [Suspect]
     Indication: RENAL TRANSPLANT
     Dosage: 1.5 MG UID/QD
     Dates: start: 19960801, end: 20081101
  2. PREDNISONE TAB [Concomitant]
  3. CELLCEPT [Concomitant]
  4. TENORMIN [Concomitant]
  5. ASPIRIN [Concomitant]
  6. VITAMIN B-12 [Concomitant]
  7. FLORINEF [Concomitant]
  8. CALTRATE [Concomitant]
  9. TAMSULOSIN (TAMSULOSIN) FORMULATION UNKNOWN [Concomitant]
  10. SODIUM BICARBONATE IN PLASTIC CONTAINER [Concomitant]
  11. AGGRENOX [Concomitant]

REACTIONS (1)
  - CEREBROVASCULAR ACCIDENT [None]
